FAERS Safety Report 7351149-5 (Version None)
Quarter: 2011Q1

REPORT INFORMATION
  Report Type: 
  Country: None (occurrence: None)
  Receive Date: 20110314
  Receipt Date: 20110304
  Transmission Date: 20110831
  Serious: Yes (Other)
  Sender: FDA-Public Use
  Company Number: US-ASTRAZENECA-2011SE03644

PATIENT
  Age: 80 Year
  Sex: Female

DRUGS (2)
  1. NEXIUM [Suspect]
     Route: 048
  2. CRESTOR [Suspect]
     Route: 048

REACTIONS (7)
  - VOMITING [None]
  - DRUG DOSE OMISSION [None]
  - APHAGIA [None]
  - CEREBROVASCULAR ACCIDENT [None]
  - EATING DISORDER [None]
  - CONDITION AGGRAVATED [None]
  - MALAISE [None]
